FAERS Safety Report 5566212-9 (Version None)
Quarter: 2007Q4

REPORT INFORMATION
  Report Type: 
  Country: None (occurrence: None)
  Receive Date: 20071219
  Receipt Date: 20071012
  Transmission Date: 20080405
  Serious: No
  Sender: FDA-Public Use
  Company Number: US-KINGPHARMUSA00001-K200701333

PATIENT

DRUGS (1)
  1. APLISOL [Suspect]
     Dosage: .5 ML, SINGLE
     Route: 030
     Dates: start: 20071011, end: 20071011

REACTIONS (4)
  - BACK PAIN [None]
  - INJECTION SITE PAIN [None]
  - MUSCULOSKELETAL CHEST PAIN [None]
  - WRONG DRUG ADMINISTERED [None]
